FAERS Safety Report 12567220 (Version 1)
Quarter: 2016Q3

REPORT INFORMATION
  Report Type: Spontaneous
  Country: SE (occurrence: SE)
  Receive Date: 20160718
  Receipt Date: 20160718
  Transmission Date: 20161109
  Serious: Yes (Other)
  Sender: FDA-Public Use
  Company Number: SE-TEVA-675678ISR

PATIENT
  Age: 52 Year
  Sex: Female

DRUGS (1)
  1. ESCITALOPRAM [Suspect]
     Active Substance: ESCITALOPRAM OXALATE
     Route: 048

REACTIONS (2)
  - Hypoaesthesia oral [Recovered/Resolved]
  - Pharyngeal oedema [Recovered/Resolved]
